FAERS Safety Report 5922856-3 (Version None)
Quarter: 2008Q4

REPORT INFORMATION
  Report Type: 
  Country: None (occurrence: None)
  Receive Date: 20081017
  Receipt Date: 20081009
  Transmission Date: 20090506
  Serious: Yes (Death, Other)
  Sender: FDA-Public Use
  Company Number: PHHY2008JP23154

PATIENT
  Sex: Male

DRUGS (16)
  1. CYCLOSPORINE [Suspect]
     Indication: CORD BLOOD TRANSPLANT THERAPY
  2. CYCLOSPORINE [Suspect]
     Indication: PROPHYLAXIS AGAINST GRAFT VERSUS HOST DISEASE
  3. METHOTREXATE [Concomitant]
     Indication: CORD BLOOD TRANSPLANT THERAPY
  4. METHOTREXATE [Concomitant]
     Indication: PROPHYLAXIS AGAINST GRAFT VERSUS HOST DISEASE
  5. GEMTUZUMAB OZOGAMICIN [Concomitant]
     Indication: CORD BLOOD TRANSPLANT THERAPY
     Dosage: 6 MG/M2
  6. GEMTUZUMAB OZOGAMICIN [Concomitant]
     Dosage: 3MG/M2
  7. GEMTUZUMAB OZOGAMICIN [Concomitant]
     Dosage: 6 MG/M2
  8. GEMTUZUMAB OZOGAMICIN [Concomitant]
     Dosage: 6 MG/M2
  9. HEPARIN [Concomitant]
     Indication: PROPHYLAXIS
  10. VITAMIN K TAB [Concomitant]
     Indication: PROPHYLAXIS
  11. URSODIOL [Concomitant]
     Indication: PROPHYLAXIS
  12. IRRADIATION [Concomitant]
     Indication: CORD BLOOD TRANSPLANT THERAPY
     Dosage: 3 GY
  13. FLUDARABINE PHOSPHATE [Concomitant]
     Indication: CORD BLOOD TRANSPLANT THERAPY
  14. CYTARABINE [Concomitant]
     Indication: CORD BLOOD TRANSPLANT THERAPY
  15. NEUPOGEN [Concomitant]
     Indication: CORD BLOOD TRANSPLANT THERAPY
  16. PLATELETS [Concomitant]
     Indication: CORD BLOOD TRANSPLANT THERAPY

REACTIONS (8)
  - ACUTE GRAFT VERSUS HOST DISEASE IN SKIN [None]
  - ACUTE MYELOID LEUKAEMIA RECURRENT [None]
  - BRONCHOPULMONARY ASPERGILLOSIS [None]
  - DIARRHOEA [None]
  - FEBRILE NEUTROPENIA [None]
  - HEPATIC FUNCTION ABNORMAL [None]
  - MUCOUS MEMBRANE DISORDER [None]
  - PLATELET COUNT DECREASED [None]
